FAERS Safety Report 22354828 (Version 1)
Quarter: 2023Q2

REPORT INFORMATION
  Report Type: Spontaneous
  Country: US (occurrence: None)
  Receive Date: 20230522
  Receipt Date: 20230522
  Transmission Date: 20230721
  Serious: Yes (Other)
  Sender: FDA-Public Use
  Company Number: None

PATIENT
  Age: 35 Year
  Sex: Male
  Weight: 108 kg

DRUGS (2)
  1. ARTIFICIAL TEARS LUBRICANT EYE DROPS NOS [Suspect]
     Active Substance: CARBOXYMETHYLCELLULOSE SODIUM OR GLYCERIN\PROPYLENE GLYCOL
     Indication: Dry eye
     Dosage: OTHER QUANTITY : 30 DROP(S);?FREQUENCY : EVERY 4 HOURS;?
     Route: 047
  2. EXCEDRIN [Concomitant]
     Active Substance: ACETAMINOPHEN\ASPIRIN\CAFFEINE

REACTIONS (3)
  - Visual impairment [None]
  - Muscle twitching [None]
  - Pain [None]

NARRATIVE: CASE EVENT DATE: 20230315
